FAERS Safety Report 12390445 (Version 1)
Quarter: 2016Q2

REPORT INFORMATION
  Report Type: Spontaneous
  Country: US (occurrence: US)
  Receive Date: 20160520
  Receipt Date: 20160520
  Transmission Date: 20160815
  Serious: Yes (Other)
  Sender: FDA-Public Use
  Company Number: US-TEVA-660157USA

PATIENT
  Sex: Female

DRUGS (6)
  1. TUMS [Concomitant]
     Active Substance: CALCIUM CARBONATE
  2. COPAXONE [Suspect]
     Active Substance: GLATIRAMER ACETATE
     Indication: MULTIPLE SCLEROSIS
     Route: 058
     Dates: start: 20090925
  3. TYLENOL [Concomitant]
     Active Substance: ACETAMINOPHEN
  4. SUCRALFATE. [Concomitant]
     Active Substance: SUCRALFATE
  5. DOXYCYCLINE. [Concomitant]
     Active Substance: DOXYCYCLINE
  6. ATIVAN [Concomitant]
     Active Substance: LORAZEPAM

REACTIONS (1)
  - Multiple sclerosis relapse [Recovered/Resolved]

NARRATIVE: CASE EVENT DATE: 2016
